FAERS Safety Report 9492330 (Version 1)
Quarter: 2013Q3

REPORT INFORMATION
  Report Type: Spontaneous
  Country: GB (occurrence: GB)
  Receive Date: 20130830
  Receipt Date: 20130830
  Transmission Date: 20140515
  Serious: Yes (Life-Threatening, Hospitalization, Other)
  Sender: FDA-Public Use
  Company Number: PHHY2013GB093411

PATIENT
  Age: 82 Year
  Sex: Female

DRUGS (3)
  1. DOXYCYCLINE [Suspect]
     Indication: LOWER RESPIRATORY TRACT INFECTION
     Dosage: 100 MG, QD
     Route: 048
     Dates: start: 20130119, end: 20130129
  2. FERROUS SULPHATE SANDOZ [Interacting]
  3. CALCICHEW [Interacting]

REACTIONS (3)
  - Medication error [Unknown]
  - Treatment failure [Recovered/Resolved]
  - Drug interaction [Unknown]
